FAERS Safety Report 8145443-8 (Version None)
Quarter: 2012Q1

REPORT INFORMATION
  Report Type: 
  Country: None (occurrence: None)
  Receive Date: 20120217
  Receipt Date: 20120210
  Transmission Date: 20120608
  Serious: Yes (Disabling, Other)
  Sender: FDA-Public Use
  Company Number: US-ELI_LILLY_AND_COMPANY-US201202001803

PATIENT
  Sex: Male

DRUGS (5)
  1. CIALIS [Suspect]
     Dosage: 5 MG, BID
     Dates: start: 20110824, end: 20110824
  2. CIALIS [Suspect]
     Dosage: 5 MG, EACH EVENING
     Dates: start: 20110825, end: 20110827
  3. ASPIRIN [Concomitant]
  4. MULTI-VITAMIN [Concomitant]
  5. CIALIS [Suspect]
     Indication: ERECTILE DYSFUNCTION
     Dosage: 10 MG, PRN
     Dates: start: 20101001

REACTIONS (9)
  - PAIN [None]
  - RETINAL VASCULAR OCCLUSION [None]
  - CYANOPSIA [None]
  - PAPILLOEDEMA [None]
  - DRUG INEFFECTIVE [None]
  - CATARACT OPERATION [None]
  - BLOOD PRESSURE DECREASED [None]
  - OPTIC ISCHAEMIC NEUROPATHY [None]
  - BLINDNESS UNILATERAL [None]
